FAERS Safety Report 21858147 (Version 1)
Quarter: 2023Q1

REPORT INFORMATION
  Report Type: Spontaneous
  Country: US (occurrence: US)
  Receive Date: 20230113
  Receipt Date: 20230113
  Transmission Date: 20230417
  Serious: No
  Sender: FDA-Public Use
  Company Number: US-BRISTOL-MYERS SQUIBB COMPANY-2023-005696

PATIENT
  Age: 80 Year
  Sex: Female

DRUGS (2)
  1. REBLOZYL [Suspect]
     Active Substance: LUSPATERCEPT-AAMT
     Indication: Myelodysplastic syndrome
     Dosage: DOSE : PLEASE SEE DESCRIBE EVENT;     FREQ : UNAVAILABLE
  2. ANAGRELIDE [Concomitant]
     Active Substance: ANAGRELIDE
     Indication: Product used for unknown indication

REACTIONS (1)
  - Platelet count increased [Unknown]
